FAERS Safety Report 7111670-1 (Version None)
Quarter: 2010Q4

REPORT INFORMATION
  Report Type: 
  Country: None (occurrence: None)
  Receive Date: 20101118
  Receipt Date: 20101109
  Transmission Date: 20110411
  Serious: Yes (Other)
  Sender: FDA-Public Use
  Company Number: PHHY2010BR76767

PATIENT
  Sex: Female

DRUGS (2)
  1. ACLASTA [Suspect]
     Dosage: 5MG/100ML
     Dates: start: 20090101
  2. GENTEAL GEL (NVO) [Suspect]

REACTIONS (3)
  - BONE PAIN [None]
  - EYE DISORDER [None]
  - FRACTURE [None]
